FAERS Safety Report 17237034 (Version 3)
Quarter: 2021Q3

REPORT INFORMATION
  Report Type: Report from Study
  Country: US (occurrence: US)
  Receive Date: 20200106
  Receipt Date: 20210705
  Transmission Date: 20211014
  Serious: Yes (Hospitalization, Other)
  Sender: FDA-Public Use
  Company Number: US-ASTELLAS-2020US000356

PATIENT
  Sex: Male

DRUGS (1)
  1. ENZALUTAMIDE [Suspect]
     Active Substance: ENZALUTAMIDE
     Indication: NEOPLASM MALIGNANT
     Route: 048
     Dates: start: 201901

REACTIONS (5)
  - Pulmonary thrombosis [Unknown]
  - Feeling hot [Unknown]
  - Pneumonia [Unknown]
  - Fatigue [Unknown]
  - Dizziness [Unknown]
